FAERS Safety Report 9885835 (Version 2)
Quarter: 2014Q1

REPORT INFORMATION
  Report Type: Spontaneous
  Country: GB (occurrence: None)
  Receive Date: 20140206
  Receipt Date: 20140220
  Transmission Date: 20141002
  Serious: Yes (Hospitalization)
  Sender: FDA-Public Use
  Company Number: AUR-APL-2014-00961

PATIENT
  Age: 52 None
  Sex: Male

DRUGS (7)
  1. VITAMIN B SUBSTANCES (VITAMIN B COMPLEX) [Concomitant]
  2. RIBAVIRIN [Suspect]
     Indication: PRODUCT USED FOR UNKNOWN INDICATION
     Dates: start: 20131101, end: 20140121
  3. INCIVO (TELAPREVIR) [Suspect]
     Indication: PRODUCT USED FOR UNKNOWN INDICATION
     Route: 048
  4. INTERFERON ALFA (INTERFERON ALFA) [Suspect]
     Indication: PRODUCT USED FOR UNKNOWN INDICATION
  5. LITHIUM CARBONATE (LITHIUM CARBONATE) [Concomitant]
  6. OLANZAPINE (OLANZA-PINE) [Concomitant]
  7. THIAMINE (THIAMINE) [Concomitant]

REACTIONS (3)
  - Swelling face [None]
  - Treatment noncompliance [None]
  - Rash [None]
